FAERS Safety Report 9997640 (Version 2)
Quarter: 2014Q1

REPORT INFORMATION
  Report Type: Spontaneous
  Country: US (occurrence: US)
  Receive Date: 20140311
  Receipt Date: 20140311
  Transmission Date: 20141002
  Serious: Yes (Other)
  Sender: FDA-Public Use
  Company Number: US-JNJFOC-20131216717

PATIENT
  Age: 14 Year
  Sex: Female
  Weight: 73.03 kg

DRUGS (19)
  1. RISPERIDONE [Suspect]
     Indication: OBSESSIVE-COMPULSIVE DISORDER
     Route: 065
     Dates: start: 201311
  2. RISPERIDONE [Suspect]
     Indication: OBSESSIVE-COMPULSIVE DISORDER
     Route: 065
     Dates: start: 201311
  3. RISPERIDONE [Suspect]
     Indication: ATTENTION DEFICIT/HYPERACTIVITY DISORDER
     Route: 065
     Dates: start: 201311
  4. RISPERIDONE [Suspect]
     Indication: ATTENTION DEFICIT/HYPERACTIVITY DISORDER
     Route: 065
     Dates: start: 201311
  5. RISPERIDONE [Suspect]
     Indication: AFFECTIVE DISORDER
     Route: 065
     Dates: start: 201311
  6. RISPERIDONE [Suspect]
     Indication: AFFECTIVE DISORDER
     Route: 065
     Dates: start: 201311
  7. FANAPT [Suspect]
     Indication: ATTENTION DEFICIT/HYPERACTIVITY DISORDER
     Route: 048
     Dates: start: 20131115
  8. FANAPT [Suspect]
     Indication: AFFECTIVE DISORDER
     Route: 048
     Dates: start: 20131115
  9. NUTRITIONAL SUPPLEMENT [Concomitant]
     Indication: PRODUCT USED FOR UNKNOWN INDICATION
  10. FOCALIN XR [Concomitant]
     Indication: PRODUCT USED FOR UNKNOWN INDICATION
     Dosage: MORNING
     Route: 065
  11. HERBAL REMEDY [Concomitant]
     Indication: PRODUCT USED FOR UNKNOWN INDICATION
  12. TEGRETOL [Concomitant]
     Indication: PRODUCT USED FOR UNKNOWN INDICATION
     Route: 065
  13. NEURONTIN [Concomitant]
     Indication: OBSESSIVE-COMPULSIVE DISORDER
     Route: 065
     Dates: start: 201311
  14. NEURONTIN [Concomitant]
     Indication: OBSESSIVE-COMPULSIVE DISORDER
     Dosage: FOR 2 DAYS
     Route: 065
     Dates: start: 201311
  15. NEURONTIN [Concomitant]
     Indication: ATTENTION DEFICIT/HYPERACTIVITY DISORDER
     Dosage: FOR 2 DAYS
     Route: 065
     Dates: start: 201311
  16. NEURONTIN [Concomitant]
     Indication: ATTENTION DEFICIT/HYPERACTIVITY DISORDER
     Route: 065
     Dates: start: 201311
  17. NEURONTIN [Concomitant]
     Indication: AFFECTIVE DISORDER
     Dosage: FOR 2 DAYS
     Route: 065
     Dates: start: 201311
  18. NEURONTIN [Concomitant]
     Indication: AFFECTIVE DISORDER
     Route: 065
     Dates: start: 201311
  19. CLONIDINE [Concomitant]
     Indication: PRODUCT USED FOR UNKNOWN INDICATION
     Route: 065

REACTIONS (4)
  - Tardive dyskinesia [Recovered/Resolved]
  - Off label use [Recovered/Resolved]
  - Panel-reactive antibody [Recovered/Resolved]
  - Extrapyramidal disorder [Recovered/Resolved]
